FAERS Safety Report 15665210 (Version 2)
Quarter: 2018Q4

REPORT INFORMATION
  Report Type: Spontaneous
  Country: US (occurrence: US)
  Receive Date: 20181128
  Receipt Date: 20181130
  Transmission Date: 20190205
  Serious: Yes (Other)
  Sender: FDA-Public Use
  Company Number: US-PFIZER INC-2018485615

PATIENT
  Age: 28 Year
  Sex: Male

DRUGS (1)
  1. BACTRIM [Suspect]
     Active Substance: SULFAMETHOXAZOLE\TRIMETHOPRIM
     Dosage: UNK, DS TABLET

REACTIONS (7)
  - Hypotension [Unknown]
  - Shock [Unknown]
  - Pyrexia [Unknown]
  - Hypoxia [Unknown]
  - Lung infiltration [Unknown]
  - Rash [Unknown]
  - Chills [Unknown]
